FAERS Safety Report 22200238 (Version 1)
Quarter: 2023Q2

REPORT INFORMATION
  Report Type: Spontaneous
  Country: CN (occurrence: None)
  Receive Date: 20230412
  Receipt Date: 20230412
  Transmission Date: 20230721
  Serious: Yes (Hospitalization)
  Sender: FDA-Public Use
  Company Number: CN-ROCHE-3327008

PATIENT
  Age: 41 Year
  Sex: Male
  Weight: 68 kg

DRUGS (2)
  1. ALECTINIB [Suspect]
     Active Substance: ALECTINIB
     Indication: Lung adenocarcinoma
     Route: 065
  2. LORLATINIB [Suspect]
     Active Substance: LORLATINIB
     Indication: Lung adenocarcinoma
     Route: 048

REACTIONS (4)
  - Disease progression [Unknown]
  - Blood glucose increased [Recovering/Resolving]
  - Ketoacidosis [Unknown]
  - Somnolence [Unknown]
